FAERS Safety Report 18537013 (Version 2)
Quarter: 2020Q4

REPORT INFORMATION
  Report Type: Report from Study
  Country: GB (occurrence: GB)
  Receive Date: 20201124
  Receipt Date: 20201130
  Transmission Date: 20210114
  Serious: Yes (Hospitalization, Other)
  Sender: FDA-Public Use
  Company Number: GB-JNJFOC-20201130661

PATIENT
  Sex: Female
  Weight: 84 kg

DRUGS (11)
  1. LEFLUNOMIDE. [Concomitant]
     Active Substance: LEFLUNOMIDE
     Dates: start: 20140808
  2. DULOXETINE. [Concomitant]
     Active Substance: DULOXETINE
     Dates: start: 20150615
  3. STELARA [Suspect]
     Active Substance: USTEKINUMAB
     Indication: PSORIASIS
     Route: 058
     Dates: start: 20130417
  4. PARACETAMOL [Concomitant]
     Active Substance: ACETAMINOPHEN
     Dates: start: 20190827, end: 20190828
  5. ETORICOXIB. [Concomitant]
     Active Substance: ETORICOXIB
     Dates: start: 20140808
  6. OMEPRAZOLE. [Concomitant]
     Active Substance: OMEPRAZOLE
     Dates: start: 20140808
  7. ARCOXIA [Concomitant]
     Active Substance: ETORICOXIB
     Dates: start: 20180201
  8. GENTAMICIN. [Concomitant]
     Active Substance: GENTAMICIN
     Dates: start: 20190827, end: 20190828
  9. SULPHASALAZINE [Concomitant]
     Active Substance: SULFASALAZINE
     Dates: start: 20180201
  10. ENOXAPARIN SODIUM. [Concomitant]
     Active Substance: ENOXAPARIN SODIUM
     Dates: start: 20190827, end: 20190828
  11. FLUOXETINE [Concomitant]
     Active Substance: FLUOXETINE HYDROCHLORIDE
     Dates: start: 20190827

REACTIONS (2)
  - Urosepsis [Recovered/Resolved with Sequelae]
  - Renal cyst [Unknown]

NARRATIVE: CASE EVENT DATE: 20190822
